FAERS Safety Report 7036092-3 (Version None)
Quarter: 2010Q4

REPORT INFORMATION
  Report Type: 
  Country: None (occurrence: None)
  Receive Date: 20101008
  Receipt Date: 20090815
  Transmission Date: 20110411
  Serious: No
  Sender: FDA-Public Use
  Company Number: US-BRISTOL-MYERS SQUIBB COMPANY-14749089

PATIENT
  Sex: Male

DRUGS (1)
  1. AVAPRO [Suspect]
     Dosage: AVAPRO TABS 150 MG  BOTTLE 30 US 008-2772-31

REACTIONS (1)
  - HYPERSENSITIVITY [None]
